FAERS Safety Report 8557577-4 (Version None)
Quarter: 2012Q3

REPORT INFORMATION
  Report Type: 
  Country: None (occurrence: None)
  Receive Date: 20120801
  Receipt Date: 20120719
  Transmission Date: 20120928
  Serious: Yes (Other)
  Sender: FDA-Public Use
  Company Number: US-WATSON-2012-10808

PATIENT
  Sex: Female
  Weight: 54 kg

DRUGS (13)
  1. HEROIN [Suspect]
     Indication: PRODUCT USED FOR UNKNOWN INDICATION
     Route: 065
  2. ASPIRIN [Concomitant]
     Dosage: UNK DOSE 3 - 4 QD
     Route: 065
  3. SEROQUEL [Concomitant]
     Indication: BIPOLAR DISORDER
     Dosage: 200 MG, BID
     Route: 048
     Dates: start: 20090401
  4. VICODIN [Suspect]
     Indication: PAIN
  5. XANAX [Concomitant]
     Indication: PRODUCT USED FOR UNKNOWN INDICATION
     Dosage: UNK DOSE, QD
     Route: 065
  6. IBUPROFEN [Concomitant]
     Indication: HAEMORRHOIDS
  7. VICODIN [Suspect]
     Indication: HAEMORRHOIDS
  8. SOMA [Concomitant]
     Indication: PAIN
     Dosage: UNK DOSE, BID
     Route: 065
  9. IBUPROFEN [Concomitant]
     Indication: PAIN
     Dosage: UNK DOSE BID
     Route: 065
  10. HYDROCODONE BITARTRATE + ACETAMINOPHEN [Suspect]
     Dosage: QID
     Route: 048
     Dates: start: 20090401
  11. CYMBALTA [Concomitant]
     Indication: DEPRESSION
     Dosage: UNK DOSE QD
     Route: 065
  12. VICODIN [Suspect]
     Indication: BACK PAIN
     Dosage: UNK, 6 DAILY
     Route: 048
     Dates: start: 19930101, end: 20090401
  13. FLUOXETINE HCL [Concomitant]
     Indication: DEPRESSION
     Dosage: 40 MG, DAILY
     Route: 048
     Dates: start: 20090401

REACTIONS (5)
  - FATIGUE [None]
  - CONSTIPATION [None]
  - IMPRISONMENT [None]
  - DRUG DEPENDENCE [None]
  - NAUSEA [None]
